FAERS Safety Report 23086854 (Version 1)
Quarter: 2023Q4

REPORT INFORMATION
  Report Type: Report from Study
  Country: US (occurrence: US)
  Receive Date: 20231020
  Receipt Date: 20231020
  Transmission Date: 20240110
  Serious: Yes (Hospitalization, Other)
  Sender: FDA-Public Use
  Company Number: US-ABBVIE-5456521

PATIENT
  Age: 77 Year
  Sex: Female
  Weight: 70.306 kg

DRUGS (12)
  1. RESTASIS [Suspect]
     Active Substance: CYCLOSPORINE
     Indication: Dry eye
     Route: 047
     Dates: start: 20230721
  2. RESTASIS [Suspect]
     Active Substance: CYCLOSPORINE
     Route: 047
     Dates: end: 20230717
  3. METOPROLOL [Concomitant]
     Active Substance: METOPROLOL
     Indication: Hypertension
  4. OMEPRAZOLE [Concomitant]
     Active Substance: OMEPRAZOLE
     Indication: Gastrooesophageal reflux disease
  5. FAMOTIDINE [Concomitant]
     Active Substance: FAMOTIDINE
     Indication: Gastrooesophageal reflux disease
  6. VITAMIN B12 [Concomitant]
     Active Substance: CYANOCOBALAMIN
     Indication: Vitamin supplementation
  7. LOSARTAN [Concomitant]
     Active Substance: LOSARTAN
     Indication: Hypertension
  8. ATORVASTATIN [Concomitant]
     Active Substance: ATORVASTATIN
     Indication: Product used for unknown indication
  9. COENZYME Q10 [Concomitant]
     Active Substance: DIETARY SUPPLEMENT\UBIDECARENONE
     Indication: Supplementation therapy
  10. LEVOTHYROXINE [Concomitant]
     Active Substance: LEVOTHYROXINE
     Indication: Thyroid disorder
  11. VITAMIN D [Concomitant]
     Active Substance: VITAMIN D NOS
     Indication: Vitamin supplementation
  12. VITAMIN C [Concomitant]
     Active Substance: ASCORBIC ACID
     Indication: Vitamin supplementation

REACTIONS (6)
  - Cerebrovascular accident [Recovered/Resolved]
  - Confusional state [Recovered/Resolved]
  - Speech disorder [Recovering/Resolving]
  - Unevaluable event [Recovered/Resolved]
  - Thrombosis [Recovered/Resolved]
  - Mobility decreased [Recovering/Resolving]

NARRATIVE: CASE EVENT DATE: 20230701
